FAERS Safety Report 4673082-X (Version None)
Quarter: 2005Q2

REPORT INFORMATION
  Report Type: 
  Country: None (occurrence: None)
  Receive Date: 20050523
  Receipt Date: 20050509
  Transmission Date: 20051028
  Serious: Yes (Death, Other)
  Sender: FDA-Public Use
  Company Number: PHNU2005DE01900

PATIENT
  Age: 79 Year
  Sex: Male

DRUGS (1)
  1. VISUDYNE [Suspect]
     Dates: start: 20050316, end: 20050316

REACTIONS (4)
  - DIARRHOEA [None]
  - LEG AMPUTATION [None]
  - PHLEBOTHROMBOSIS [None]
  - VOMITING [None]
